FAERS Safety Report 15280655 (Version 2)
Quarter: 2018Q4

REPORT INFORMATION
  Report Type: Report from Study
  Country: CA (occurrence: CA)
  Receive Date: 20180815
  Receipt Date: 20181008
  Transmission Date: 20190204
  Serious: Yes (Hospitalization, Other)
  Sender: FDA-Public Use
  Company Number: CA-TAKEDA-2018TUS024405

PATIENT
  Age: 38 Year
  Sex: Male

DRUGS (6)
  1. VEDOLIZUMAB [Suspect]
     Active Substance: VEDOLIZUMAB
     Indication: COLITIS ULCERATIVE
     Dosage: 300 MG, UNK
     Route: 042
     Dates: start: 20180501
  2. PREDNISONE. [Concomitant]
     Active Substance: PREDNISONE
     Indication: NASAL POLYPS
     Dosage: UNK
  3. VITAMIN D [Concomitant]
     Active Substance: CHOLECALCIFEROL
     Dosage: UNK
  4. CALCIUM [Concomitant]
     Active Substance: CALCIUM
     Dosage: UNK
  5. ASACOL [Concomitant]
     Active Substance: MESALAMINE
     Dosage: UNK UNK, BID
  6. ASA [Concomitant]
     Active Substance: ASPIRIN
     Dosage: 325 MG, QD

REACTIONS (1)
  - Bile duct obstruction [Not Recovered/Not Resolved]

NARRATIVE: CASE EVENT DATE: 20180701
